FAERS Safety Report 8564793-4 (Version None)
Quarter: 2012Q3

REPORT INFORMATION
  Report Type: 
  Country: None (occurrence: None)
  Receive Date: 20120803
  Receipt Date: 20120727
  Transmission Date: 20120928
  Serious: Yes (Other)
  Sender: FDA-Public Use
  Company Number: US-UCBSA-062801

PATIENT

DRUGS (1)
  1. CIMZIA [Suspect]
     Indication: CROHN'S DISEASE

REACTIONS (1)
  - PSORIASIS [None]
